FAERS Safety Report 20460193 (Version 1)
Quarter: 2022Q1

REPORT INFORMATION
  Report Type: Report from Study
  Country: US (occurrence: US)
  Receive Date: 20220211
  Receipt Date: 20220211
  Transmission Date: 20220423
  Serious: Yes (Hospitalization)
  Sender: FDA-Public Use
  Company Number: US-JAZZ-2021-US-009627

PATIENT
  Age: 10 Year
  Sex: Male
  Weight: 42.1 kg

DRUGS (10)
  1. ASPARAGINASE ERWINIA CHRYSANTHEMI [Suspect]
     Active Substance: ASPARAGINASE ERWINIA CHRYSANTHEMI
     Indication: Acute lymphocytic leukaemia
     Dosage: 33.0 MILLIGRAM, 3XWEEKLY PER 2W COURSE
     Route: 030
     Dates: start: 20201221, end: 20210101
  2. ASPARAGINASE ERWINIA CHRYSANTHEMI [Suspect]
     Active Substance: ASPARAGINASE ERWINIA CHRYSANTHEMI
     Dosage: 33.0 MILLIGRAM, 3XWEEKLY PER 2W COURSE
     Route: 030
     Dates: start: 20210122, end: 20210203
  3. ASPARAGINASE ERWINIA CHRYSANTHEMI [Suspect]
     Active Substance: ASPARAGINASE ERWINIA CHRYSANTHEMI
     Dosage: 33.0 MILLIGRAM, 3XWEEKLY PER 2W COURSE
     Route: 030
     Dates: end: 20210517
  4. DOXORUBICIN [Suspect]
     Active Substance: DOXORUBICIN
     Dosage: 32 MILLIGRAM, INTERMITTENT
     Route: 042
     Dates: start: 20210430
  5. VINCRISTINE [Suspect]
     Active Substance: VINCRISTINE
     Dosage: 2 MILLIGRAM, INTERMITTENT
     Route: 042
     Dates: start: 20201022
  6. LEVOFLOXACIN [Concomitant]
     Active Substance: LEVOFLOXACIN
     Dosage: 500 MILLIGRAM, QD
     Route: 048
     Dates: start: 20210514
  7. FLUCONAZOLE [Concomitant]
     Active Substance: FLUCONAZOLE
     Dosage: 200 MILLIGRAM, QD
     Route: 048
     Dates: start: 20210429
  8. BACTRIM [Concomitant]
     Active Substance: SULFAMETHOXAZOLE\TRIMETHOPRIM
     Dosage: 400/80 MILLIGRAM 1.5 TABLET BID SAT/SUN
     Route: 048
  9. FAMOTIDINE [Concomitant]
     Active Substance: FAMOTIDINE
     Dosage: 20 MILLIGRAM, BID
     Route: 048
  10. GRANISETRON [Concomitant]
     Active Substance: GRANISETRON
     Dosage: 1 MILLIGRAM, PRN
     Route: 048
     Dates: start: 20210107

REACTIONS (3)
  - Colitis [Recovered/Resolved]
  - Enterocolitis infectious [Recovered/Resolved]
  - Shigella test positive [Recovered/Resolved]

NARRATIVE: CASE EVENT DATE: 20210519
